FAERS Safety Report 4691608-7 (Version None)
Quarter: 2005Q2

REPORT INFORMATION
  Report Type: 
  Country: None (occurrence: None)
  Receive Date: 20050608
  Receipt Date: 20050401
  Transmission Date: 20051028
  Serious: Yes (Other)
  Sender: FDA-Public Use
  Company Number: 350629

PATIENT
  Sex: Female
  Weight: 4.7 kg

DRUGS (2)
  1. ISOTRETINOIN [Suspect]
     Indication: ACNE
     Dosage: 10 MG 5 PER DAY ORAL
     Route: 048
     Dates: start: 20020815, end: 20030115
  2. NAPROXEN [Concomitant]

REACTIONS (1)
  - NO ADVERSE EFFECT [None]
